FAERS Safety Report 21593782 (Version 1)
Quarter: 2022Q4

REPORT INFORMATION
  Report Type: Spontaneous
  Country: US (occurrence: None)
  Receive Date: 20221114
  Receipt Date: 20221114
  Transmission Date: 20230113
  Serious: No
  Sender: FDA-Public Use
  Company Number: None

PATIENT
  Age: 82 Year
  Sex: Male
  Weight: 77.56 kg

DRUGS (10)
  1. ABIRATERONE [Suspect]
     Active Substance: ABIRATERONE
     Indication: Prostate cancer
     Dosage: FREQUENCY : DAILY;?
     Route: 048
  2. ASPIRIN ADULT LOW DOSE [Concomitant]
  3. CALCIUM [Concomitant]
  4. ELIGARD [Concomitant]
  5. ELIQUIS [Concomitant]
  6. FAMOTIDINE [Concomitant]
  7. PANTOPRAZOLE SODIUM [Concomitant]
  8. PREDNISONE [Concomitant]
  9. SIMVASTATIN [Concomitant]
     Active Substance: SIMVASTATIN
  10. SOTALOL HCI [Concomitant]

REACTIONS (1)
  - Lymphoma [None]
